FAERS Safety Report 4291891-6 (Version None)
Quarter: 2004Q1

REPORT INFORMATION
  Report Type: 
  Country: None (occurrence: None)
  Receive Date: 20040211
  Receipt Date: 20030902
  Transmission Date: 20041129
  Serious: No
  Sender: FDA-Public Use
  Company Number: US-GLAXOSMITHKLINE-A0424909A

PATIENT
  Age: 59 Year
  Sex: Male
  Weight: 88.2 kg

DRUGS (1)
  1. IMITREX [Suspect]
     Indication: HEADACHE
     Route: 058
     Dates: start: 20030507

REACTIONS (2)
  - DRUG INEFFECTIVE [None]
  - PHARMACEUTICAL PRODUCT COMPLAINT [None]
